FAERS Safety Report 9814744 (Version 1)
Quarter: 2014Q1

REPORT INFORMATION
  Report Type: Spontaneous
  Country: US (occurrence: US)
  Receive Date: 20140113
  Receipt Date: 20140113
  Transmission Date: 20141002
  Serious: Yes (Other)
  Sender: FDA-Public Use
  Company Number: US-SANOFI-AVENTIS-2013SA060835

PATIENT
  Age: 63 Year
  Sex: Female

DRUGS (48)
  1. DOCETAXEL [Suspect]
     Route: 051
     Dates: start: 20041123
  2. TRASTUZUMAB [Suspect]
     Route: 051
     Dates: start: 20051209
  3. TRASTUZUMAB [Suspect]
     Dates: start: 20060127
  4. TRASTUZUMAB [Suspect]
     Dates: start: 20110418
  5. TRASTUZUMAB [Suspect]
     Dates: start: 20060220
  6. TRASTUZUMAB [Suspect]
     Dates: start: 20060313
  7. TRASTUZUMAB [Suspect]
     Dates: start: 20060403
  8. TRASTUZUMAB [Suspect]
     Dates: start: 20060515
  9. TRASTUZUMAB [Suspect]
     Dates: start: 20060925
  10. TRASTUZUMAB [Suspect]
     Dates: start: 20061016
  11. TRASTUZUMAB [Suspect]
     Dates: start: 20061106
  12. TRASTUZUMAB [Suspect]
     Dosage: DOSE: 1500 MG MORNING AND 1800 MG EVENING
  13. TRASTUZUMAB [Suspect]
  14. TRASTUZUMAB [Suspect]
     Dates: start: 2008
  15. TRASTUZUMAB [Suspect]
  16. TRASTUZUMAB [Suspect]
     Dates: start: 20080904
  17. TRASTUZUMAB [Suspect]
     Dates: start: 20120507
  18. TRASTUZUMAB [Suspect]
     Dates: start: 20081030, end: 20081124
  19. CAPECITABINE [Suspect]
  20. CAPECITABINE [Suspect]
  21. CAPECITABINE [Suspect]
     Dosage: DOSE: 1500 MG EVENING AND 1800 MG MORNING
  22. CAPECITABINE [Suspect]
     Dosage: DOSE: 1500 MG EVENING AND 1800 MG MORNING
  23. BEVACIZUMAB [Suspect]
     Dates: start: 200902
  24. PACLITAXEL [Suspect]
     Dates: start: 2008
  25. PACLITAXEL [Suspect]
  26. PACLITAXEL [Suspect]
     Dates: start: 20080904
  27. PACLITAXEL [Suspect]
     Dates: start: 20081030, end: 20081124
  28. PACLITAXEL [Suspect]
     Dates: start: 200902
  29. CARBOPLATIN [Suspect]
  30. LAPATINIB TOSILATE [Suspect]
     Dates: start: 20110418
  31. LAPATINIB TOSILATE [Suspect]
     Dates: start: 20090925, end: 201104
  32. LAPATINIB TOSILATE [Suspect]
     Dates: start: 20120316
  33. LAPATINIB TOSILATE [Suspect]
     Dates: start: 20120430
  34. VINORELBINE TARTRATE [Suspect]
     Route: 051
     Dates: start: 20051209
  35. VINORELBINE TARTRATE [Suspect]
     Dates: start: 20060127
  36. VINORELBINE TARTRATE [Suspect]
     Dates: start: 20060220
  37. VINORELBINE TARTRATE [Suspect]
     Dates: start: 20060313
  38. VINORELBINE TARTRATE [Suspect]
     Dates: start: 20060403
  39. VINORELBINE TARTRATE [Suspect]
     Dates: start: 20060515
  40. TAVEGYL [Concomitant]
  41. ZANTAC [Concomitant]
  42. SOLU-MEDROL [Concomitant]
  43. TEMESTA [Concomitant]
  44. PREDNISOLON [Concomitant]
  45. KYTRIL [Concomitant]
  46. EMPERAL [Concomitant]
  47. ZOFRAN [Concomitant]
  48. CORODIL [Concomitant]

REACTIONS (38)
  - Disease progression [Unknown]
  - Ejection fraction decreased [Unknown]
  - Paraesthesia [Unknown]
  - Dysaesthesia [Unknown]
  - Neutropenia [Unknown]
  - Sleep disorder [Unknown]
  - Vulvovaginal dryness [Not Recovered/Not Resolved]
  - Palmar-plantar erythrodysaesthesia syndrome [Recovering/Resolving]
  - Nausea [Recovering/Resolving]
  - Abdominal discomfort [Recovering/Resolving]
  - Gastrointestinal motility disorder [Recovering/Resolving]
  - Headache [Recovering/Resolving]
  - Influenza like illness [Unknown]
  - Fatigue [Unknown]
  - Dysgeusia [Recovering/Resolving]
  - Dyspnoea [Unknown]
  - Heart rate irregular [Recovering/Resolving]
  - Dry mouth [Unknown]
  - Constipation [Unknown]
  - Nail disorder [Recovered/Resolved]
  - Fluid retention [Not Recovered/Not Resolved]
  - Lymphoedema [Recovered/Resolved]
  - Diarrhoea [Unknown]
  - Cardiovascular disorder [Unknown]
  - Neurological symptom [Unknown]
  - Skin lesion [Unknown]
  - Chest pain [Unknown]
  - Dyspnoea [Unknown]
  - Myalgia [Unknown]
  - Feeling hot [Recovered/Resolved]
  - Malaise [Recovered/Resolved]
  - Rash pustular [Unknown]
  - Skin fissures [Recovered/Resolved]
  - Nasal ulcer [Unknown]
  - Cough [Unknown]
  - Erythema [Unknown]
  - Skin swelling [Unknown]
  - Calcium ionised increased [Unknown]
